FAERS Safety Report 18283434 (Version 1)
Quarter: 2020Q3

REPORT INFORMATION
  Report Type: Spontaneous
  Country: JP (occurrence: JP)
  Receive Date: 20200918
  Receipt Date: 20200918
  Transmission Date: 20201103
  Serious: Yes (Other)
  Sender: FDA-Public Use
  Company Number: JP-PFIZER INC-2020354380

PATIENT
  Age: 80 Year
  Sex: Female

DRUGS (1)
  1. ZITHROMAC 250MG [Suspect]
     Active Substance: AZITHROMYCIN DIHYDRATE
     Route: 048

REACTIONS (5)
  - Haematochezia [Unknown]
  - Enterocolitis haemorrhagic [Unknown]
  - Abdominal pain [Unknown]
  - Haemorrhage [Unknown]
  - Diarrhoea [Unknown]
